FAERS Safety Report 6794651-7 (Version None)
Quarter: 2010Q2

REPORT INFORMATION
  Report Type: 
  Country: None (occurrence: None)
  Receive Date: 20100625
  Receipt Date: 20100614
  Transmission Date: 20101027
  Serious: Yes (Hospitalization)
  Sender: FDA-Public Use
  Company Number: NSADSS2001027692

PATIENT
  Sex: Female

DRUGS (2)
  1. REMICADE [Suspect]
     Route: 041
     Dates: start: 20010901
  2. REMICADE [Suspect]
     Indication: CONNECTIVE TISSUE DISORDER
     Route: 041
     Dates: start: 20010901

REACTIONS (2)
  - PNEUMONIA LEGIONELLA [None]
  - RESPIRATORY FAILURE [None]
